FAERS Safety Report 12450494 (Version 2)
Quarter: 2016Q3

REPORT INFORMATION
  Report Type: Spontaneous
  Country: US (occurrence: US)
  Receive Date: 20160609
  Receipt Date: 20160803
  Transmission Date: 20161109
  Serious: Yes (Other)
  Sender: FDA-Public Use
  Company Number: PHEH2016US014033

PATIENT

DRUGS (1)
  1. GLEEVEC [Suspect]
     Active Substance: IMATINIB MESYLATE
     Indication: PRODUCT USED FOR UNKNOWN INDICATION
     Route: 065

REACTIONS (1)
  - Generalised tonic-clonic seizure [Unknown]
